FAERS Safety Report 7307333-X (Version None)
Quarter: 2011Q1

REPORT INFORMATION
  Report Type: 
  Country: None (occurrence: None)
  Receive Date: 20110223
  Receipt Date: 20110216
  Transmission Date: 20110831
  Serious: Yes (Other)
  Sender: FDA-Public Use
  Company Number: GB-PFIZER INC-2011035106

PATIENT
  Age: 69 Year
  Sex: Female

DRUGS (1)
  1. TOVIAZ [Suspect]
     Dosage: 8 MG, UNK
     Dates: start: 20100901, end: 20110215

REACTIONS (4)
  - PULMONARY OEDEMA [None]
  - FATIGUE [None]
  - COUGH [None]
  - LUNG DISORDER [None]
